FAERS Safety Report 15579912 (Version 1)
Quarter: 2018Q4

REPORT INFORMATION
  Report Type: Spontaneous
  Country: RO (occurrence: US)
  Receive Date: 20181102
  Receipt Date: 20181102
  Transmission Date: 20190205
  Serious: Yes (Death)
  Sender: FDA-Public Use
  Company Number: RO-LEADIANT BIOSCIENCES INC-2018STPI000677

PATIENT
  Sex: Male

DRUGS (1)
  1. ABELCET [Suspect]
     Active Substance: AMPHOTERICIN B\DIMYRISTOYLPHOSPHATIDYLCHOLINE, DL-\DIMYRISTOYLPHOSPHATIDYLGLYCEROL, DL-
     Indication: FUNGAL INFECTION
     Dosage: 5 MG/KG, UNK

REACTIONS (1)
  - Product preparation error [Fatal]
